FAERS Safety Report 12156273 (Version 2)
Quarter: 2016Q1

REPORT INFORMATION
  Report Type: Spontaneous
  Country: US (occurrence: US)
  Receive Date: 20160307
  Receipt Date: 20160323
  Transmission Date: 20160526
  Serious: No
  Sender: FDA-Public Use
  Company Number: US-BAYER-2016-041405

PATIENT
  Age: 70 Year
  Sex: Female

DRUGS (4)
  1. SYNTHROID [Concomitant]
     Active Substance: LEVOTHYROXINE SODIUM
     Indication: HYPOTHYROIDISM
     Dosage: UNK
     Route: 062
  2. CLIMARA [Suspect]
     Active Substance: ESTRADIOL
     Dosage: UNK
     Route: 062
     Dates: start: 20160226, end: 20160229
  3. CLIMARA [Suspect]
     Active Substance: ESTRADIOL
     Dosage: UNK
     Dates: start: 20160212, end: 20160229
  4. CLIMARA [Suspect]
     Active Substance: ESTRADIOL
     Dosage: UNK
     Route: 062
     Dates: start: 20160307, end: 20160308

REACTIONS (9)
  - Application site hypersensitivity [Recovering/Resolving]
  - Product quality issue [None]
  - Application site erythema [None]
  - Application site erythema [Recovering/Resolving]
  - Application site vesicles [Recovering/Resolving]
  - Skin burning sensation [Not Recovered/Not Resolved]
  - Application site pruritus [Recovering/Resolving]
  - Application site hypersensitivity [Recovering/Resolving]
  - Application site pruritus [Not Recovered/Not Resolved]

NARRATIVE: CASE EVENT DATE: 2016
